FAERS Safety Report 6161989-6 (Version None)
Quarter: 2009Q2

REPORT INFORMATION
  Report Type: 
  Country: None (occurrence: None)
  Receive Date: 20090417
  Receipt Date: 20090417
  Transmission Date: 20091009
  Serious: Yes (Other)
  Sender: FDA-Public Use
  Company Number: None

PATIENT
  Age: 61 Year
  Sex: Female
  Weight: 109 kg

DRUGS (11)
  1. CEFTRIAXONE [Suspect]
     Indication: INFECTION
     Dosage: 1 GRAM Q 24 HOURS IV
     Route: 042
     Dates: start: 20090415, end: 20090415
  2. CEFTRIAXONE [Suspect]
     Indication: URINARY TRACT INFECTION
     Dosage: 1 GRAM Q 24 HOURS IV
     Route: 042
     Dates: start: 20090415, end: 20090415
  3. COREG CR [Concomitant]
  4. DIOVAN [Concomitant]
  5. MAG OX [Concomitant]
  6. NOVOLIN-N INSULIN [Concomitant]
  7. ASPIRIN [Concomitant]
  8. NORVASC [Concomitant]
  9. FOLIC ACID [Concomitant]
  10. FERROUS SULFATE TAB [Concomitant]
  11. PROTONIX [Concomitant]

REACTIONS (2)
  - INFUSION RELATED REACTION [None]
  - PRURITUS GENERALISED [None]
